FAERS Safety Report 24831232 (Version 3)
Quarter: 2025Q2

REPORT INFORMATION
  Report Type: Spontaneous
  Country: US (occurrence: US)
  Receive Date: 20250110
  Receipt Date: 20250428
  Transmission Date: 20250716
  Serious: No
  Sender: TRAVERE THERAPEUTICS
  Company Number: US-TRAVERE-2024TVT01371

PATIENT
  Age: 36 Year
  Sex: Female

DRUGS (7)
  1. FILSPARI [Suspect]
     Active Substance: SPARSENTAN
     Indication: Product used for unknown indication
     Route: 048
     Dates: start: 20241011
  2. FILSPARI [Suspect]
     Active Substance: SPARSENTAN
     Route: 048
     Dates: start: 202410
  3. VITAMIN D3 [Concomitant]
     Active Substance: CHOLECALCIFEROL
  4. LEXAPRO [Concomitant]
     Active Substance: ESCITALOPRAM OXALATE
  5. SYNTHROID [Concomitant]
     Active Substance: LEVOTHYROXINE SODIUM
  6. CRESTOR [Concomitant]
     Active Substance: ROSUVASTATIN CALCIUM
  7. RYBELSUS [Concomitant]
     Active Substance: SEMAGLUTIDE

REACTIONS (6)
  - Enteritis [Unknown]
  - Tachycardia [Unknown]
  - Abdominal discomfort [Unknown]
  - Feeding disorder [Unknown]
  - Cough [Unknown]
  - Illness [Unknown]

NARRATIVE: CASE EVENT DATE: 20241201
